FAERS Safety Report 15506144 (Version 1)
Quarter: 2018Q4

REPORT INFORMATION
  Report Type: Spontaneous
  Country: US (occurrence: US)
  Receive Date: 20181016
  Receipt Date: 20181016
  Transmission Date: 20190205
  Serious: No
  Sender: FDA-Public Use
  Company Number: US-RICON PHARMA, LLC-RIC201808-000859

PATIENT
  Sex: Female
  Weight: 97.52 kg

DRUGS (1)
  1. CHLORTHALIDONE 25 MG TABLET [Suspect]
     Active Substance: CHLORTHALIDONE
     Indication: POLYURIA

REACTIONS (10)
  - Malaise [Recovered/Resolved]
  - Nausea [Recovered/Resolved]
  - Hot flush [Recovered/Resolved]
  - Headache [Recovered/Resolved]
  - Condition aggravated [Recovered/Resolved]
  - Abdominal pain upper [Recovered/Resolved]
  - Drug ineffective [Recovered/Resolved]
  - Blood pressure increased [Recovered/Resolved]
  - Constipation [Recovered/Resolved]
  - Dizziness [Recovered/Resolved]
